FAERS Safety Report 6184966-8 (Version None)
Quarter: 2009Q2

REPORT INFORMATION
  Report Type: 
  Country: None (occurrence: None)
  Receive Date: 20090511
  Receipt Date: 20090130
  Transmission Date: 20091009
  Serious: No
  Sender: FDA-Public Use
  Company Number: A0766153A

PATIENT
  Age: 76 Year
  Sex: Male

DRUGS (6)
  1. COREG CR [Suspect]
     Dosage: 80MG PER DAY
     Route: 048
     Dates: start: 20081202
  2. LASIX [Concomitant]
  3. AVAPRO [Concomitant]
  4. AVODART [Concomitant]
  5. FLOMAX [Concomitant]
  6. JANUVIA [Concomitant]

REACTIONS (1)
  - DIZZINESS [None]
